FAERS Safety Report 8576105-0 (Version None)
Quarter: 2012Q3

REPORT INFORMATION
  Report Type: 
  Country: None (occurrence: None)
  Receive Date: 20120725
  Receipt Date: 20120716
  Transmission Date: 20120928
  Serious: Yes (Other)
  Sender: FDA-Public Use
  Company Number: AUR-APL-2012-03124

PATIENT
  Age: 79 Year
  Sex: Female
  Weight: 45.81 kg

DRUGS (2)
  1. LOSARTAN POTASSIUM [Suspect]
     Indication: HYPERTENSION
     Dosage: 25 MG (25 MG,1 IN 1 D),ORAL
     Route: 048
     Dates: start: 20120702, end: 20120710
  2. SYNTHROID [Concomitant]

REACTIONS (4)
  - NO THERAPEUTIC RESPONSE [None]
  - BLOOD PRESSURE INADEQUATELY CONTROLLED [None]
  - WEIGHT DECREASED [None]
  - DRUG INEFFECTIVE [None]
